FAERS Safety Report 6607475-8 (Version None)
Quarter: 2010Q1

REPORT INFORMATION
  Report Type: 
  Country: None (occurrence: None)
  Receive Date: 20100217
  Receipt Date: 20100201
  Transmission Date: 20100710
  Serious: No
  Sender: FDA-Public Use
  Company Number: WSDF_00146

PATIENT
  Sex: Male
  Weight: 132 kg

DRUGS (7)
  1. WINRHO SDF [Suspect]
     Indication: IDIOPATHIC THROMBOCYTOPENIC PURPURA
     Dosage: 49.7 ?G/KG TOTAL INTRAVENOUS (NOT OTHERWISE SPECIFIED), (INTRAVENOUS (NOT OTHERWISE SPECIFIED)
     Route: 042
     Dates: start: 20000124, end: 20000124
  2. WINRHO SDF [Suspect]
     Indication: IDIOPATHIC THROMBOCYTOPENIC PURPURA
     Dosage: 49.7 ?G/KG TOTAL INTRAVENOUS (NOT OTHERWISE SPECIFIED), (INTRAVENOUS (NOT OTHERWISE SPECIFIED)
     Route: 042
     Dates: start: 20000124, end: 20000124
  3. WINRHO SDF [Suspect]
  4. PREDNISONE TAB [Concomitant]
  5. TYLENOL (CAPLET) [Concomitant]
  6. DARVOCET-N 100 [Concomitant]
  7. BIAXIN [Concomitant]

REACTIONS (6)
  - BLOOD GLUCOSE INCREASED [None]
  - DYSPHONIA [None]
  - DYSPNOEA [None]
  - INTRAVASCULAR HAEMOLYSIS [None]
  - MYALGIA [None]
  - POLLAKIURIA [None]
